FAERS Safety Report 12640918 (Version 2)
Quarter: 2016Q3

REPORT INFORMATION
  Report Type: Spontaneous
  Country: US (occurrence: US)
  Receive Date: 20160810
  Receipt Date: 20160907
  Transmission Date: 20161109
  Serious: Yes (Other)
  Sender: FDA-Public Use
  Company Number: US-GLAXOSMITHKLINE-US2016GSK114597

PATIENT
  Sex: Female

DRUGS (6)
  1. XOPENEX [Suspect]
     Active Substance: LEVALBUTEROL HYDROCHLORIDE
  2. SULFASALAZINE. [Suspect]
     Active Substance: SULFASALAZINE
     Indication: SYSTEMIC LUPUS ERYTHEMATOSUS
  3. NUCALA [Suspect]
     Active Substance: MEPOLIZUMAB
     Indication: ASTHMA
     Dosage: 100 MG, CYC
     Route: 042
     Dates: start: 201603
  4. ADVAIR HFA [Suspect]
     Active Substance: FLUTICASONE PROPIONATE\SALMETEROL XINAFOATE
  5. ADVAIR DISKUS [Suspect]
     Active Substance: FLUTICASONE PROPIONATE\SALMETEROL XINAFOATE
  6. TOPAMAX [Suspect]
     Active Substance: TOPIRAMATE

REACTIONS (22)
  - Rotator cuff repair [Unknown]
  - Weight decreased [Unknown]
  - Ill-defined disorder [Unknown]
  - Peripheral swelling [Unknown]
  - Shoulder arthroplasty [Unknown]
  - Joint arthroplasty [Unknown]
  - Headache [Unknown]
  - Asthma [Unknown]
  - Respiratory distress [Unknown]
  - Multiple allergies [Unknown]
  - Limb injury [Unknown]
  - Shoulder operation [Unknown]
  - Joint dislocation [Unknown]
  - Back pain [Unknown]
  - Product substitution issue [Unknown]
  - Therapeutic response unexpected [Unknown]
  - Migraine [Unknown]
  - Systemic lupus erythematosus [Unknown]
  - Surgery [Unknown]
  - Knee arthroplasty [Unknown]
  - Spinal operation [Unknown]
  - Intentional product use issue [Unknown]
